FAERS Safety Report 19953109 (Version 1)
Quarter: 2021Q4

REPORT INFORMATION
  Report Type: Spontaneous
  Country: US (occurrence: US)
  Receive Date: 20211013
  Receipt Date: 20211013
  Transmission Date: 20220303
  Serious: No
  Sender: FDA-Public Use
  Company Number: US-REDHILL BIOPHARMA-2021RDH00020

PATIENT
  Sex: Male

DRUGS (3)
  1. MOVANTIK [Suspect]
     Active Substance: NALOXEGOL OXALATE
     Dosage: UNK
  2. DILTIAZEM [Suspect]
     Active Substance: DILTIAZEM
     Dosage: UNK
  3. UNSPECIFIED OPIATE MEDICATION [Concomitant]

REACTIONS (3)
  - Gastrointestinal disorder [Unknown]
  - Drug withdrawal syndrome [Unknown]
  - Labelled drug-drug interaction issue [Recovered/Resolved]
